FAERS Safety Report 21230442 (Version 4)
Quarter: 2022Q4

REPORT INFORMATION
  Report Type: Spontaneous
  Country: JP (occurrence: JP)
  Receive Date: 20220818
  Receipt Date: 20221020
  Transmission Date: 20230112
  Serious: Yes (Hospitalization, Other)
  Sender: FDA-Public Use
  Company Number: JP-BEH-2022148653

PATIENT
  Age: 5 Month
  Sex: Male
  Weight: 4.5 kg

DRUGS (11)
  1. ALBUMINAR-25 [Suspect]
     Active Substance: ALBUMIN HUMAN
     Indication: Fluid replacement
     Dosage: 9.4 MILLILITER, TOT
     Route: 042
     Dates: start: 20190731, end: 20190801
  2. ALBUMINAR-25 [Suspect]
     Active Substance: ALBUMIN HUMAN
     Indication: Hypoproteinaemia
  3. LASIX [Concomitant]
     Active Substance: FUROSEMIDE
     Indication: Hyperkalaemia
     Dosage: 0.5 MG/H
     Route: 042
     Dates: start: 20190725, end: 20190726
  4. LASIX [Concomitant]
     Active Substance: FUROSEMIDE
     Indication: Urine output decreased
     Dosage: 0.5 MG/H
     Route: 042
     Dates: start: 20190728, end: 20190729
  5. LASIX [Concomitant]
     Active Substance: FUROSEMIDE
     Indication: Cardiac failure
     Dosage: 0.5 MG/H
     Route: 042
     Dates: start: 20190730, end: 20190814
  6. ALBUMIN HUMAN [Suspect]
     Active Substance: ALBUMIN HUMAN
     Indication: Fluid replacement
     Dosage: 30 MILLILITER, TOT
     Route: 042
     Dates: start: 20190727, end: 20190728
  7. ALBUMIN HUMAN [Suspect]
     Active Substance: ALBUMIN HUMAN
     Indication: Hypoproteinaemia
  8. CEFOTAXIME [Concomitant]
     Active Substance: CEFOTAXIME SODIUM
     Indication: Bacteraemia
     Dosage: 100 MILLIGRAM, TID
     Route: 042
     Dates: start: 20190729
  9. VANCOMYCIN [Concomitant]
     Active Substance: VANCOMYCIN
     Indication: Bacteraemia
     Dosage: 60 MILLIGRAM, BID
     Route: 042
     Dates: start: 20190729
  10. CYANOCOBALAMIN\PYRIDOXINE HYDROCHLORIDE\THIAMINE [Concomitant]
     Active Substance: CYANOCOBALAMIN\PYRIDOXINE HYDROCHLORIDE\THIAMINE
     Indication: Dehydration
     Dosage: UNK
     Dates: start: 20190725
  11. LEVOCARNITINE [Concomitant]
     Active Substance: LEVOCARNITINE
     Indication: Dehydration
     Dosage: UNK
     Dates: start: 20190725

REACTIONS (2)
  - Cardiac failure [Recovered/Resolved]
  - Hypervolaemia [Recovered/Resolved]

NARRATIVE: CASE EVENT DATE: 20190801
